FAERS Safety Report 10993632 (Version 1)
Quarter: 2015Q2

REPORT INFORMATION
  Report Type: Spontaneous
  Country: JP (occurrence: None)
  Receive Date: 20150403
  Receipt Date: 20150403
  Transmission Date: 20150821
  Serious: Yes (Disabling)
  Sender: FDA-Public Use
  Company Number: ABR_02145_2015

PATIENT
  Age: 56 Year
  Sex: Female

DRUGS (1)
  1. GLIADEL [Suspect]
     Active Substance: CARMUSTINE
     Indication: GLIOMA
     Dosage: INTRACEREBRAL
     Dates: start: 20150226

REACTIONS (2)
  - Cerebral infarction [None]
  - Hemiparesis [None]

NARRATIVE: CASE EVENT DATE: 20150305
